FAERS Safety Report 4496657-X (Version None)
Quarter: 2004Q4

REPORT INFORMATION
  Report Type: 
  Country: None (occurrence: None)
  Receive Date: 20041108
  Receipt Date: 20041108
  Transmission Date: 20050328
  Serious: No
  Sender: FDA-Public Use
  Company Number: None

PATIENT
  Age: 53 Year
  Sex: Female

DRUGS (2)
  1. BEXTRA [Suspect]
     Indication: PAIN
     Dosage: 10 MG DAILY ORAL
     Route: 048
     Dates: start: 20040816, end: 20040819
  2. BEXTRA [Suspect]
     Indication: SWELLING
     Dosage: 10 MG DAILY ORAL
     Route: 048
     Dates: start: 20040816, end: 20040819

REACTIONS (3)
  - DYSPNOEA [None]
  - DYSPNOEA EXERTIONAL [None]
  - PITTING OEDEMA [None]
